FAERS Safety Report 4788831-X (Version None)
Quarter: 2005Q4

REPORT INFORMATION
  Report Type: 
  Country: None (occurrence: None)
  Receive Date: 20051004
  Receipt Date: 20050927
  Transmission Date: 20060501
  Serious: Yes (Hospitalization)
  Sender: FDA-Public Use
  Company Number: GXKR2005PL01722

PATIENT
  Age: 33 Year
  Sex: Male
  Weight: 71 kg

DRUGS (6)
  1. BROMERGON (NGX) (BROMOCRIPTINE) TABLET [Suspect]
     Indication: BLOOD PROLACTIN INCREASED
     Dosage: 0.625 MG, QD, ORAL
     Route: 048
     Dates: start: 20050401, end: 20050901
  2. SUMAMED (AZITHROMYCIN) [Concomitant]
  3. METRONIDAZOLE [Concomitant]
  4. VITAMINS NOS (VITAMINS NOS) [Concomitant]
  5. ZINC GLUCONATE (ZINC GLUCONATE) [Concomitant]
  6. BRONCHO-VAXOM (DIPLOCOCCUS PNEUMONIAE TYP 1, HAEMOPHILUS INFLUENZAE, K [Concomitant]

REACTIONS (2)
  - PHLEBITIS DEEP [None]
  - VENOUS THROMBOSIS [None]
